FAERS Safety Report 9715469 (Version 1)
Quarter: 2013Q4

REPORT INFORMATION
  Report Type: Spontaneous
  Country: US (occurrence: US)
  Receive Date: 20131127
  Receipt Date: 20131127
  Transmission Date: 20140711
  Serious: No
  Sender: FDA-Public Use
  Company Number: US-009507513-1311USA005294

PATIENT
  Age: 66 Year
  Sex: Female

DRUGS (2)
  1. AZASITE [Suspect]
     Indication: OCULAR ROSACEA
     Dosage: 1 DROP IN BOTH EYES AT BEDTIME
     Route: 047
     Dates: start: 20131025
  2. LIPITOR [Concomitant]

REACTIONS (7)
  - Superficial injury of eye [Not Recovered/Not Resolved]
  - Ocular hyperaemia [Not Recovered/Not Resolved]
  - Drug dose omission [Unknown]
  - Drug dose omission [Unknown]
  - Drug dose omission [Unknown]
  - Product packaging quantity issue [Unknown]
  - Eye irritation [Not Recovered/Not Resolved]
